FAERS Safety Report 18154218 (Version 3)
Quarter: 2025Q2

REPORT INFORMATION
  Report Type: Report from Study
  Country: DE (occurrence: DE)
  Receive Date: 20200816
  Receipt Date: 20250424
  Transmission Date: 20250716
  Serious: No
  Sender: ROCHE
  Company Number: DE-ROCHE-2579021

PATIENT
  Age: 28 Year
  Sex: Female
  Weight: 85.0 kg

DRUGS (13)
  1. OCRELIZUMAB [Suspect]
     Active Substance: OCRELIZUMAB
     Indication: Relapsing multiple sclerosis
     Route: 042
     Dates: start: 20180814, end: 20180828
  2. OCRELIZUMAB [Suspect]
     Active Substance: OCRELIZUMAB
     Route: 042
     Dates: start: 20190204
  3. EBASTINE [Concomitant]
     Active Substance: EBASTINE
     Indication: Prophylaxis
     Dosage: ADVERSE REACTION PROPHYLAXIS DURING OCREVUS ADMINISTRATION
     Route: 048
     Dates: start: 20190203, end: 20190205
  4. EBASTINE [Concomitant]
     Active Substance: EBASTINE
     Route: 048
     Dates: start: 20180813, end: 20180815
  5. EBASTINE [Concomitant]
     Active Substance: EBASTINE
     Route: 048
     Dates: start: 20180827, end: 20180829
  6. CHOLECALCIFEROL [Concomitant]
     Active Substance: CHOLECALCIFEROL
     Indication: Vitamin D deficiency
     Route: 048
     Dates: start: 201406
  7. PREDNISOLONE [Concomitant]
     Active Substance: PREDNISOLONE
     Indication: Prophylaxis
     Dosage: ADVERSE REACTION PROPHYLAXIS DURING OCREVUS ADMINISTRATION
     Route: 042
     Dates: start: 20180814, end: 20180814
  8. PREDNISOLONE [Concomitant]
     Active Substance: PREDNISOLONE
     Route: 042
     Dates: start: 20180828, end: 20180828
  9. PREDNISOLONE [Concomitant]
     Active Substance: PREDNISOLONE
     Route: 042
     Dates: start: 20190204, end: 20190204
  10. RANITIDINE [Concomitant]
     Active Substance: RANITIDINE
     Indication: Prophylaxis
     Dosage: DVERSE REACTION PROPHYLAXIS DURING OCREVUS ADMINISTRATION
     Route: 048
     Dates: start: 20180813, end: 20180815
  11. RANITIDINE [Concomitant]
     Active Substance: RANITIDINE
     Route: 048
     Dates: start: 20180827, end: 20180829
  12. RANITIDINE [Concomitant]
     Active Substance: RANITIDINE
     Route: 048
     Dates: start: 20190203, end: 20190205
  13. ACETAMINOPHEN [Concomitant]
     Active Substance: ACETAMINOPHEN
     Indication: Pain
     Route: 048
     Dates: start: 201805, end: 201805

REACTIONS (2)
  - Multiple sclerosis pseudo relapse [Recovered/Resolved]
  - Periorbital pain [Recovered/Resolved]

NARRATIVE: CASE EVENT DATE: 20191104
